FAERS Safety Report 6269156-2 (Version None)
Quarter: 2009Q3

REPORT INFORMATION
  Report Type: 
  Country: None (occurrence: None)
  Receive Date: 20090715
  Receipt Date: 20090707
  Transmission Date: 20100115
  Serious: Yes (Hospitalization)
  Sender: FDA-Public Use
  Company Number: US-JNJFOC-20090702585

PATIENT
  Sex: Male
  Weight: 56.2 kg

DRUGS (7)
  1. REMICADE [Suspect]
     Route: 042
  2. REMICADE [Suspect]
     Route: 042
  3. REMICADE [Suspect]
     Indication: INFLAMMATORY BOWEL DISEASE
     Route: 042
  4. 5-AMINOSALICYLIC ACID [Concomitant]
     Dosage: 6000 MG/D
     Route: 048
  5. METRONIDAZOLE [Concomitant]
  6. CIPRO [Concomitant]
     Dosage: 800 MG/D
  7. ROWASA [Concomitant]
     Dosage: ROWESA ENEMA/VSL3/FISH OIL
     Route: 054

REACTIONS (1)
  - COLITIS ULCERATIVE [None]
